FAERS Safety Report 5011852-9 (Version None)
Quarter: 2006Q2

REPORT INFORMATION
  Report Type: 
  Country: None (occurrence: None)
  Receive Date: 20060524
  Receipt Date: 20060524
  Transmission Date: 20061013
  Serious: Yes (Hospitalization)
  Sender: FDA-Public Use
  Company Number: None

PATIENT
  Age: 64 Year
  Sex: Male
  Weight: 72.5 kg

DRUGS (12)
  1. NAPROXEN [Suspect]
     Indication: OSTEOARTHRITIS
     Dosage: 500MG BID PO
     Route: 047
     Dates: start: 20050114, end: 20060314
  2. CLOTRIMAZOLE [Concomitant]
  3. CYANOCOBALAMIN [Concomitant]
  4. FLUOCINOLONE ACETONIDE [Concomitant]
  5. FOLIC ACID [Concomitant]
  6. GLYBURIDE [Concomitant]
  7. LISINOPRIL AND HYDROCHLOROTHIAZIDE [Concomitant]
  8. LORATADINE [Concomitant]
  9. PANCRELIPASE [Concomitant]
  10. TRAZODONE HCL [Concomitant]
  11. SILDENAFIL CITRATE [Concomitant]
  12. OXYCODONE HCL / APAP [Concomitant]

REACTIONS (7)
  - ABDOMINAL PAIN [None]
  - ANAEMIA [None]
  - EROSIVE OESOPHAGITIS [None]
  - FAECES DISCOLOURED [None]
  - INFLAMMATION [None]
  - JEJUNAL ULCER [None]
  - UPPER GASTROINTESTINAL HAEMORRHAGE [None]
